FAERS Safety Report 6888520-1 (Version None)
Quarter: 2010Q3

REPORT INFORMATION
  Report Type: 
  Country: None (occurrence: None)
  Receive Date: 20100730
  Receipt Date: 20100719
  Transmission Date: 20110219
  Serious: Yes (Hospitalization)
  Sender: FDA-Public Use
  Company Number: HR-WATSON-2010-09911

PATIENT
  Age: 36 Year
  Sex: Male

DRUGS (5)
  1. DIAZEPAM [Suspect]
     Indication: ANXIETY
     Dosage: 10 MG, UNKNOWN
     Route: 030
  2. HALOPERIDOL (WATSON LABORATORIES) [Suspect]
     Indication: PRODUCT USED FOR UNKNOWN INDICATION
     Dosage: UNK
  3. CLOZAPINE [Suspect]
     Indication: AGITATION
     Dosage: 200 MG, DAILY
  4. VALPROIC ACID [Suspect]
     Indication: AGITATION
     Dosage: 1000 MG, DAILY
  5. PROMAZINE HYDROCHLORIDE [Suspect]
     Indication: AGITATION
     Dosage: 50 MG, INTERMITTENTLY

REACTIONS (1)
  - NEUROLEPTIC MALIGNANT SYNDROME [None]
